FAERS Safety Report 7956939-3 (Version None)
Quarter: 2011Q4

REPORT INFORMATION
  Report Type: 
  Country: None (occurrence: None)
  Receive Date: 20111205
  Receipt Date: 20111205
  Transmission Date: 20120403
  Serious: Yes (Disabling, Other)
  Sender: FDA-Public Use
  Company Number: None

PATIENT
  Sex: Female
  Weight: 86.182 kg

DRUGS (1)
  1. MIRENA [Suspect]
     Indication: CONTRACEPTION
     Dates: start: 20091229, end: 20111229

REACTIONS (5)
  - IRRITABILITY [None]
  - DEVICE DISLOCATION [None]
  - LOSS OF LIBIDO [None]
  - FATIGUE [None]
  - HEADACHE [None]
